FAERS Safety Report 16564809 (Version 1)
Quarter: 2019Q3

REPORT INFORMATION
  Report Type: Spontaneous
  Country: US (occurrence: US)
  Receive Date: 20190712
  Receipt Date: 20190712
  Transmission Date: 20191004
  Serious: Yes (Death)
  Sender: FDA-Public Use
  Company Number: US-ADAAP-201900107

PATIENT
  Age: 68 Year
  Sex: Female
  Weight: 129 kg

DRUGS (1)
  1. LUTATHERA [Suspect]
     Active Substance: LUTETIUM OXODOTREOTIDE LU-177
     Indication: NEUROENDOCRINE CARCINOMA METASTATIC
     Dosage: 2ND DOSE
     Route: 065
     Dates: start: 20190327, end: 20190327

REACTIONS (1)
  - Disease progression [Fatal]
